FAERS Safety Report 5304765-6 (Version None)
Quarter: 2007Q2

REPORT INFORMATION
  Report Type: 
  Country: None (occurrence: None)
  Receive Date: 20070423
  Receipt Date: 20070413
  Transmission Date: 20071010
  Serious: Yes (Hospitalization)
  Sender: FDA-Public Use
  Company Number: FR-GILEAD-2007-0011129

PATIENT
  Sex: Male
  Weight: 60 kg

DRUGS (11)
  1. TRUVADA [Suspect]
     Indication: HIV INFECTION
     Route: 048
     Dates: start: 20060831
  2. SUSTIVA [Suspect]
     Indication: HIV INFECTION
     Route: 048
     Dates: start: 20060831
  3. CORTANCYL [Concomitant]
     Route: 048
     Dates: start: 20060810
  4. TRIFLUCAN [Concomitant]
     Indication: PNEUMONITIS CRYPTOCOCCAL
     Route: 048
     Dates: start: 20060728
  5. BACTRIM [Concomitant]
     Indication: ANTIFUNGAL PROPHYLAXIS
     Route: 048
     Dates: start: 20060707
  6. MYAMBUTOL [Concomitant]
     Indication: MYCOBACTERIAL INFECTION
     Route: 048
     Dates: start: 20060728
  7. ZECLAR [Concomitant]
     Indication: MYCOBACTERIAL INFECTION
     Route: 048
     Dates: start: 20060728
  8. RIFATER [Concomitant]
     Route: 048
     Dates: start: 20060728
  9. VALACYCLOVIR HCL [Concomitant]
     Indication: ANTIVIRAL PROPHYLAXIS
     Route: 048
     Dates: start: 20060713
  10. HYDROCORTISONE [Concomitant]
     Route: 048
     Dates: start: 20061222
  11. RIFINAH [Concomitant]
     Indication: MYCOBACTERIAL INFECTION
     Route: 048
     Dates: start: 20061025

REACTIONS (5)
  - CRYPTOCOCCOSIS [None]
  - IMMUNE RECONSTITUTION SYNDROME [None]
  - LYMPHADENITIS [None]
  - PYREXIA [None]
  - VOMITING [None]
